FAERS Safety Report 15061769 (Version 1)
Quarter: 2018Q3

REPORT INFORMATION
  Report Type: Report from Study
  Country: US (occurrence: US)
  Receive Date: 20180625
  Receipt Date: 20180625
  Transmission Date: 20181010
  Serious: Yes (Death, Life-Threatening, Hospitalization)
  Sender: FDA-Public Use
  Company Number: US-ROCHE-2139687

PATIENT
  Age: 70 Year
  Sex: Female
  Weight: 59.9 kg

DRUGS (13)
  1. BLINDED TUCATINIB [Suspect]
     Active Substance: TUCATINIB
     Indication: BREAST CANCER METASTATIC
     Dosage: ON 02/MAY/2018, RECEIVED MOST RECENT DOSE OF BLINDED TUCATINIB PRIOR TO AE ONCET
     Route: 048
     Dates: start: 20180418
  2. LEVOTHYROXINE. [Concomitant]
     Active Substance: LEVOTHYROXINE
     Route: 065
     Dates: start: 20180202
  3. PROPRANOLOL [Concomitant]
     Active Substance: PROPRANOLOL HYDROCHLORIDE
     Route: 065
     Dates: start: 20171013
  4. TYLENOL WITH CODEINE [Concomitant]
     Active Substance: ACETAMINOPHEN\CODEINE PHOSPHATE
     Route: 065
     Dates: start: 20180425
  5. TRASTUZUMAB. [Suspect]
     Active Substance: TRASTUZUMAB
     Indication: BREAST CANCER METASTATIC
     Dosage: ON 02/MAY/2018, RECEIVED MOST RECENT DOSE OF TRASTUZUMAB PRIOR TO AE ONCET?ONE TIME LOADING DOSE
     Route: 042
     Dates: start: 20180418
  6. GABAPENTIN. [Concomitant]
     Active Substance: GABAPENTIN
     Route: 065
     Dates: start: 20170804
  7. ESCITALOPRAM [Concomitant]
     Active Substance: ESCITALOPRAM OXALATE
     Route: 065
     Dates: start: 20180202
  8. CAPECITABINE. [Suspect]
     Active Substance: CAPECITABINE
     Indication: BREAST CANCER METASTATIC
     Dosage: ON 02/MAY/2018, RECEIVED MOST RECENT DOSE OF CAPECITABINE PRIOR TO AE ONCET
     Route: 048
     Dates: start: 20180418
  9. DEXAMETHASONE. [Concomitant]
     Active Substance: DEXAMETHASONE
     Route: 065
     Dates: start: 20180215
  10. LOMOTIL [Concomitant]
     Active Substance: ATROPINE SULFATE\DIPHENOXYLATE HYDROCHLORIDE
     Route: 065
     Dates: start: 20180430
  11. TRAMADOL. [Concomitant]
     Active Substance: TRAMADOL
     Route: 065
     Dates: start: 20180112
  12. OLOPATADINE. [Concomitant]
     Active Substance: OLOPATADINE
     Route: 065
     Dates: start: 20180202
  13. ONDANSETRON [Concomitant]
     Active Substance: ONDANSETRON
     Route: 065
     Dates: start: 20180425

REACTIONS (21)
  - Diarrhoea [None]
  - Urinary tract infection [None]
  - Respiratory failure [None]
  - Choking [None]
  - Asthenia [None]
  - Drug dose omission [None]
  - Abdominal pain [None]
  - Confusional state [None]
  - Pulmonary oedema [None]
  - Acute kidney injury [None]
  - Malnutrition [None]
  - Sepsis [Fatal]
  - Mouth ulceration [None]
  - Septic shock [None]
  - Cholecystitis [None]
  - Mucosal inflammation [None]
  - Dehydration [None]
  - Klebsiella test positive [None]
  - Cholelithiasis [None]
  - Atelectasis [None]
  - Multiple organ dysfunction syndrome [None]

NARRATIVE: CASE EVENT DATE: 20180507
